FAERS Safety Report 4370267-7 (Version None)
Quarter: 2004Q2

REPORT INFORMATION
  Report Type: 
  Country: None (occurrence: None)
  Receive Date: 20040603
  Receipt Date: 20040402
  Transmission Date: 20050107
  Serious: Yes (Other)
  Sender: FDA-Public Use
  Company Number: US-BRISTOL-MYERS SQUIBB COMPANY-12549473

PATIENT
  Age: 42 Year
  Sex: Female

DRUGS (1)
  1. ABILIFY [Suspect]
     Dosage: 1/2 OF A 10MG TAB

REACTIONS (10)
  - BLOOD CREATININE INCREASED [None]
  - BRADYCARDIA [None]
  - COGWHEEL RIGIDITY [None]
  - CONFUSIONAL STATE [None]
  - CONVULSION [None]
  - HOSTILITY [None]
  - SUICIDAL IDEATION [None]
  - TACHYCARDIA [None]
  - VOMITING [None]
  - WEIGHT DECREASED [None]
